FAERS Safety Report 4525053-1 (Version None)
Quarter: 2004Q4

REPORT INFORMATION
  Report Type: 
  Country: None (occurrence: None)
  Receive Date: 20041213
  Receipt Date: 20041206
  Transmission Date: 20050328
  Serious: Yes (Other)
  Sender: FDA-Public Use
  Company Number: JP-MERCK-0412USA01117

PATIENT
  Age: 55 Year
  Sex: Female

DRUGS (5)
  1. PEPCID RPD [Suspect]
     Route: 048
     Dates: end: 20041121
  2. PEPCID RPD [Suspect]
     Route: 048
     Dates: start: 20041122, end: 20041204
  3. NORVASC [Suspect]
     Route: 048
     Dates: end: 20041204
  4. CARDENALIN [Concomitant]
     Route: 048
     Dates: end: 20041205
  5. DIOVAN [Concomitant]
     Route: 048

REACTIONS (1)
  - SINUS ARREST [None]
